FAERS Safety Report 4876588-3 (Version None)
Quarter: 2005Q4

REPORT INFORMATION
  Report Type: 
  Country: None (occurrence: None)
  Receive Date: 20051206
  Receipt Date: 20051020
  Transmission Date: 20060501
  Serious: No
  Sender: FDA-Public Use
  Company Number: USA0506100044

PATIENT
  Age: 58 Year
  Sex: Female

DRUGS (6)
  1. PROZAC [Suspect]
     Indication: DEPRESSION
     Dates: start: 19920101
  2. PROZAC [Suspect]
     Indication: DEPRESSION
     Dates: start: 20030101
  3. CYMBALTA [Suspect]
     Indication: DEPRESSION
     Dates: start: 20051018
  4. PREMARIN [Concomitant]
  5. PROPYLTHIOURACIL [Concomitant]
  6. SYNTHROID [Concomitant]

REACTIONS (14)
  - AGITATION [None]
  - ANXIETY [None]
  - COLD SWEAT [None]
  - DRUG TOLERANCE DECREASED [None]
  - DRY MOUTH [None]
  - FEELING ABNORMAL [None]
  - FEELING COLD [None]
  - HYPERHIDROSIS [None]
  - INFLUENZA [None]
  - MIDDLE INSOMNIA [None]
  - POLLAKIURIA [None]
  - SPEECH DISORDER [None]
  - THIRST [None]
  - TREMOR [None]
